FAERS Safety Report 4401867-3 (Version None)
Quarter: 2004Q3

REPORT INFORMATION
  Report Type: 
  Country: None (occurrence: None)
  Receive Date: 20040714
  Receipt Date: 20040625
  Transmission Date: 20050211
  Serious: Yes (Other)
  Sender: FDA-Public Use
  Company Number: USA040466206

PATIENT
  Age: 74 Year
  Sex: Female
  Weight: 58 kg

DRUGS (3)
  1. GEMZAR [Suspect]
     Indication: BREAST CANCER METASTATIC
     Dosage: 1000 MG/M2
     Dates: start: 20031001, end: 20040401
  2. PROCRIT (ERYTHYROPOIETIN [Concomitant]
  3. NEUPOGEN (FILGRASTIM) [Concomitant]

REACTIONS (3)
  - DEEP VEIN THROMBOSIS [None]
  - EYELID OEDEMA [None]
  - VISION BLURRED [None]
